FAERS Safety Report 24679365 (Version 2)
Quarter: 2024Q4

REPORT INFORMATION
  Report Type: Spontaneous
  Country: BR (occurrence: BR)
  Receive Date: 20241129
  Receipt Date: 20241209
  Transmission Date: 20250115
  Serious: Yes (Hospitalization)
  Sender: ACCORD
  Company Number: BR-Accord-457087

PATIENT
  Age: 50 Year
  Sex: Female
  Weight: 64 kg

DRUGS (3)
  1. DIMETHYL FUMARATE [Suspect]
     Active Substance: DIMETHYL FUMARATE
     Indication: Multiple sclerosis
     Dosage: STRENGTH: 240 MG, TWO TABLETS DAILY (ONE TABLET AT LUNCH AND ONE TABLE AT DINNER)
     Route: 048
     Dates: start: 2023, end: 202411
  2. INSULIN GLARGINE [Concomitant]
     Active Substance: INSULIN GLARGINE
     Indication: Diabetes mellitus
     Dosage: 26 UNITS/DAY. SINCE THE PATIENT WAS 12 YEAR OLD
  3. DIMETHYL FUMARATE [Suspect]
     Active Substance: DIMETHYL FUMARATE
     Indication: Multiple sclerosis
     Dosage: STRENGTH: 480 MG, TWO TABLETS DAILY (ONE TABLET AT LUNCH AND ONE TABLE AT DINNER)
     Route: 048
     Dates: start: 2023, end: 202411

REACTIONS (2)
  - Gastroenteritis [Recovered/Resolved]
  - Diarrhoea [Recovered/Resolved]

NARRATIVE: CASE EVENT DATE: 20241001
